FAERS Safety Report 7282430-6 (Version None)
Quarter: 2011Q1

REPORT INFORMATION
  Report Type: 
  Country: None (occurrence: None)
  Receive Date: 20110209
  Receipt Date: 20110131
  Transmission Date: 20110831
  Serious: Yes (Life-Threatening, Hospitalization)
  Sender: FDA-Public Use
  Company Number: FR-BRISTOL-MYERS SQUIBB COMPANY-15521909

PATIENT
  Age: 78 Year
  Sex: Female

DRUGS (15)
  1. PAROXETINE HCL [Concomitant]
  2. BRICANYL [Concomitant]
  3. ATROVENT [Concomitant]
  4. HYPERIUM [Concomitant]
  5. TARDYFERON [Concomitant]
  6. TRIATEC [Concomitant]
     Dosage: TRIATEC CAPS
  7. NEXIUM [Concomitant]
  8. UMULINE PROFIL [Concomitant]
     Dosage: 8 IU DAILY
  9. COUMADIN [Suspect]
     Route: 048
  10. LOXEN [Concomitant]
     Dosage: LOXEN SR,CAPS
  11. ATHYMIL [Concomitant]
  12. ACTRAPID [Concomitant]
  13. LASIX [Concomitant]
     Dosage: LASILIX TABS
  14. SPECIAFOLDINE [Concomitant]
     Dosage: SPECIAFOLDINE 5
  15. DIFFU-K [Concomitant]

REACTIONS (11)
  - SHOCK [None]
  - RESPIRATORY FAILURE [None]
  - GASTROINTESTINAL HAEMORRHAGE [None]
  - MELAENA [None]
  - DIVERTICULUM [None]
  - HYPOTHERMIA [None]
  - KETOACIDOSIS [None]
  - LEUKOCYTOSIS [None]
  - RENAL FAILURE ACUTE [None]
  - HAEMORRHAGIC ANAEMIA [None]
  - SPLENIC INJURY [None]
